FAERS Safety Report 7382030-3 (Version None)
Quarter: 2011Q1

REPORT INFORMATION
  Report Type: 
  Country: None (occurrence: None)
  Receive Date: 20110329
  Receipt Date: 20110324
  Transmission Date: 20110831
  Serious: Yes (Hospitalization, Other)
  Sender: FDA-Public Use
  Company Number: US-PFIZER INC-2010181799

PATIENT
  Sex: Male

DRUGS (3)
  1. HYDROCODONE [Concomitant]
     Indication: OSTEOARTHRITIS
     Dosage: UNK
     Dates: start: 20050101
  2. CHANTIX [Suspect]
     Indication: SMOKING CESSATION THERAPY
     Dosage: STARTER PACK
     Dates: start: 20090501, end: 20091219
  3. HYDROCODONE [Concomitant]
     Indication: BACK PAIN

REACTIONS (7)
  - HEADACHE [None]
  - AGGRESSION [None]
  - AMNESIA [None]
  - INSOMNIA [None]
  - CONVULSION [None]
  - TONGUE HAEMATOMA [None]
  - LOSS OF CONSCIOUSNESS [None]
